FAERS Safety Report 7284312-2 (Version None)
Quarter: 2011Q1

REPORT INFORMATION
  Report Type: 
  Country: None (occurrence: None)
  Receive Date: 20110209
  Receipt Date: 20110131
  Transmission Date: 20110831
  Serious: Yes (Hospitalization, Other)
  Sender: FDA-Public Use
  Company Number: US-ASTRAZENECA-2011SE05458

PATIENT
  Age: 72 Year
  Sex: Female
  Weight: 104.3 kg

DRUGS (9)
  1. SEROQUEL [Suspect]
     Dosage: 25 MG IN THE MORNING, 100 MG AT NIGHT
     Route: 048
  2. LOVAZA [Concomitant]
  3. LIPITOR [Concomitant]
  4. ARICEPT [Concomitant]
  5. ASPIRIN [Concomitant]
  6. NEURONTIN [Concomitant]
  7. ARIMIDEX [Concomitant]
  8. NEXIUM [Concomitant]
  9. ZOLPIDEM [Concomitant]

REACTIONS (4)
  - PAIN [None]
  - BREAST SWELLING [None]
  - BREAST CANCER [None]
  - HYSTERECTOMY [None]
